FAERS Safety Report 5692087-3 (Version None)
Quarter: 2008Q2

REPORT INFORMATION
  Report Type: 
  Country: None (occurrence: None)
  Receive Date: 20080402
  Receipt Date: 20080321
  Transmission Date: 20081010
  Serious: Yes (Other)
  Sender: FDA-Public Use
  Company Number: US-WYE-H03252208

PATIENT
  Sex: Male
  Weight: 101.7 kg

DRUGS (3)
  1. PROTONIX [Suspect]
     Route: 048
     Dates: start: 20070301
  2. COREG [Suspect]
     Dosage: UNKNOWN
     Dates: start: 20080201, end: 20080201
  3. INSULIN HUMAN/INSULIN HUMAN INJECTION, ISOPHANE [Concomitant]
     Dosage: 35 IU BID
     Dates: start: 19870101

REACTIONS (5)
  - ABDOMINAL DISTENSION [None]
  - BENIGN PROSTATIC HYPERPLASIA [None]
  - DYSPNOEA [None]
  - HEPATOMEGALY [None]
  - HYPERTENSION [None]
